FAERS Safety Report 6538539-5 (Version None)
Quarter: 2010Q1

REPORT INFORMATION
  Report Type: 
  Country: None (occurrence: None)
  Receive Date: 20100113
  Receipt Date: 20100113
  Transmission Date: 20100710
  Serious: Yes (Other)
  Sender: FDA-Public Use
  Company Number: None

PATIENT
  Age: 66 Year
  Sex: Female
  Weight: 86.4 kg

DRUGS (2)
  1. NAMENDA [Suspect]
     Indication: DEMENTIA ALZHEIMER'S TYPE
     Dosage: NAMENDA STARTER PACK (5MG +10MG) 1 5 MG WK#1 2 5MG WK#2 1 10MG + 1 5MG WK#3 2 10MG DAILY WK#4
     Dates: start: 20091108, end: 20091204
  2. EXELON [Concomitant]

REACTIONS (2)
  - CONFUSIONAL STATE [None]
  - DISORIENTATION [None]
